FAERS Safety Report 4448179-X (Version None)
Quarter: 2004Q3

REPORT INFORMATION
  Report Type: 
  Country: None (occurrence: None)
  Receive Date: 20040813
  Receipt Date: 20040616
  Transmission Date: 20050211
  Serious: Yes (Hospitalization)
  Sender: FDA-Public Use
  Company Number: T04-USA-03512-01

PATIENT
  Age: 58 Year
  Sex: Female
  Weight: 71.8 kg

DRUGS (5)
  1. NAMENDA [Suspect]
     Indication: DEMENTIA ALZHEIMER'S TYPE
     Dosage: 20 MG BID PO
     Route: 048
     Dates: start: 20040204, end: 20040419
  2. WELLBUTRIN [Suspect]
     Indication: DEPRESSION
     Dosage: 150 MG BID PO
     Route: 048
     Dates: start: 20000101, end: 20040419
  3. EXELON [Concomitant]
  4. PREMPRO [Concomitant]
  5. PAXIL [Concomitant]

REACTIONS (4)
  - ANXIETY [None]
  - APHASIA [None]
  - CONVULSION [None]
  - FALL [None]
